FAERS Safety Report 25263688 (Version 1)
Quarter: 2025Q2

REPORT INFORMATION
  Report Type: Spontaneous
  Country: US (occurrence: US)
  Receive Date: 20250502
  Receipt Date: 20250502
  Transmission Date: 20250717
  Serious: Yes (Other)
  Sender: BRISTOL MYERS SQUIBB
  Company Number: US-BRISTOL-MYERS SQUIBB COMPANY-2025-062168

PATIENT
  Age: 68 Year
  Sex: Female

DRUGS (9)
  1. ELIQUIS [Suspect]
     Active Substance: APIXABAN
     Indication: Product used for unknown indication
  2. TREPROSTINIL [Suspect]
     Active Substance: TREPROSTINIL
     Indication: Pulmonary arterial hypertension
     Dosage: QID
     Route: 055
     Dates: start: 20240614
  3. TREPROSTINIL [Suspect]
     Active Substance: TREPROSTINIL
     Route: 055
     Dates: start: 2024, end: 20240707
  4. TREPROSTINIL [Suspect]
     Active Substance: TREPROSTINIL
     Route: 055
  5. TREPROSTINIL [Suspect]
     Active Substance: TREPROSTINIL
     Route: 055
     Dates: start: 2024
  6. TREPROSTINIL [Suspect]
     Active Substance: TREPROSTINIL
     Route: 055
  7. TREPROSTINIL [Suspect]
     Active Substance: TREPROSTINIL
     Route: 055
  8. TYLENOL [Suspect]
     Active Substance: ACETAMINOPHEN
     Indication: Headache
  9. TADALAFIL [Concomitant]
     Active Substance: TADALAFIL
     Indication: Product used for unknown indication

REACTIONS (16)
  - Dyspnoea at rest [Unknown]
  - Headache [Unknown]
  - Dyspnoea [Not Recovered/Not Resolved]
  - Epistaxis [Recovered/Resolved]
  - Joint swelling [Unknown]
  - Pain [Unknown]
  - Cough [Not Recovered/Not Resolved]
  - Retching [Unknown]
  - Nocturnal dyspnoea [Unknown]
  - Night sweats [Unknown]
  - Mood swings [Unknown]
  - Illness [Unknown]
  - Hypotension [Unknown]
  - Dizziness [Unknown]
  - Gingival bleeding [Unknown]
  - Neck pain [Unknown]

NARRATIVE: CASE EVENT DATE: 20240614
